FAERS Safety Report 16961231 (Version 1)
Quarter: 2019Q4

REPORT INFORMATION
  Report Type: Spontaneous
  Country: GB (occurrence: GB)
  Receive Date: 20191025
  Receipt Date: 20191025
  Transmission Date: 20200122
  Serious: Yes (Other)
  Sender: FDA-Public Use
  Company Number: GB-AMGEN-GBRSP2019171890

PATIENT
  Age: 79 Year
  Sex: Female

DRUGS (12)
  1. PROLIA [Suspect]
     Active Substance: DENOSUMAB
     Indication: OSTEOPOROSIS
     Dosage: UNK
     Route: 065
     Dates: start: 20190517
  2. ATORVASTATIN [Concomitant]
     Active Substance: ATORVASTATIN
  3. FYBOGEL [Concomitant]
     Active Substance: PLANTAGO OVATA SEED
  4. ADCAL D3 [Concomitant]
     Active Substance: CALCIUM CARBONATE\CHOLECALCIFEROL
  5. FLUTICASONE. [Concomitant]
     Active Substance: FLUTICASONE
  6. STERIMAR [SEA WATER] [Concomitant]
  7. ZOPICLONE [Concomitant]
     Active Substance: ZOPICLONE
  8. PARACETAMOL [Concomitant]
     Active Substance: ACETAMINOPHEN
  9. CLOPIDOGREL [Concomitant]
     Active Substance: CLOPIDOGREL BISULFATE
  10. LANSOPRAZOLE. [Concomitant]
     Active Substance: LANSOPRAZOLE
  11. VENTOLINE [SALBUTAMOL] [Concomitant]
     Active Substance: ALBUTEROL SULFATE
  12. FLUOXETINE [Concomitant]
     Active Substance: FLUOXETINE HYDROCHLORIDE

REACTIONS (3)
  - Gingival abscess [Unknown]
  - Dental paraesthesia [Unknown]
  - Gingival recession [Unknown]

NARRATIVE: CASE EVENT DATE: 2019
